FAERS Safety Report 10428021 (Version 1)
Quarter: 2014Q3

REPORT INFORMATION
  Report Type: Spontaneous
  Country: US (occurrence: US)
  Receive Date: 20140903
  Receipt Date: 20140903
  Transmission Date: 20150326
  Serious: No
  Sender: FDA-Public Use
  Company Number: US-PFIZER INC-2014241921

PATIENT
  Age: 81 Year
  Sex: Male
  Weight: 90.7 kg

DRUGS (3)
  1. ADVIL [Suspect]
     Active Substance: IBUPROFEN
     Indication: PAIN
     Dosage: 200 MG, ONCE A DAY
     Route: 048
     Dates: start: 201408, end: 201408
  2. ADVIL [Suspect]
     Active Substance: IBUPROFEN
     Dosage: 200 MG, TWO TIMES A DAY
     Route: 048
     Dates: start: 201408, end: 201408
  3. ADVIL [Suspect]
     Active Substance: IBUPROFEN
     Dosage: UNK
     Route: 048
     Dates: start: 201408

REACTIONS (1)
  - Drug ineffective [Unknown]

NARRATIVE: CASE EVENT DATE: 201408
